FAERS Safety Report 9257562 (Version 2)
Quarter: 2013Q2

REPORT INFORMATION
  Report Type: Report from Study
  Country: CH (occurrence: CH)
  Receive Date: 20130426
  Receipt Date: 20130506
  Transmission Date: 20140414
  Serious: Yes (Death, Hospitalization)
  Sender: FDA-Public Use
  Company Number: CH-MPIJNJ-2013-02917

PATIENT
  Sex: 0

DRUGS (2)
  1. VELCADE [Suspect]
     Indication: PLASMA CELL MYELOMA
     Dosage: 2.1 MG, UNK
     Route: 042
     Dates: start: 20130409, end: 20130412
  2. VIRACEPT [Suspect]
     Indication: PLASMA CELL MYELOMA
     Dosage: 2500 MG, UNK
     Route: 048
     Dates: start: 20130404, end: 20130414

REACTIONS (5)
  - Respiratory failure [Fatal]
  - Ulcerative keratitis [Fatal]
  - Laryngeal inflammation [Unknown]
  - Viral infection [Unknown]
  - Rash maculo-papular [Unknown]
